FAERS Safety Report 25580600 (Version 1)
Quarter: 2025Q3

REPORT INFORMATION
  Report Type: Spontaneous
  Country: US (occurrence: US)
  Receive Date: 20250718
  Receipt Date: 20250718
  Transmission Date: 20251021
  Serious: No
  Sender: NOVO NORDISK
  Company Number: US-NOVOPROD-1418045

PATIENT
  Age: 56 Year
  Sex: Female

DRUGS (1)
  1. WEGOVY [Suspect]
     Active Substance: SEMAGLUTIDE
     Indication: Weight control
     Dosage: 0.5 MG, QW
     Route: 058
     Dates: start: 20250314

REACTIONS (4)
  - Visual impairment [Not Recovered/Not Resolved]
  - Ill-defined disorder [Unknown]
  - Injection site pain [Unknown]
  - Product use issue [Unknown]

NARRATIVE: CASE EVENT DATE: 20250321
